FAERS Safety Report 4294228-1 (Version None)
Quarter: 2004Q1

REPORT INFORMATION
  Report Type: 
  Country: None (occurrence: None)
  Receive Date: 20040211
  Receipt Date: 20040123
  Transmission Date: 20041129
  Serious: Yes (Hospitalization, Disabling)
  Sender: FDA-Public Use
  Company Number: US_0401100236

PATIENT
  Age: 63 Year
  Sex: Male
  Weight: 114 kg

DRUGS (2)
  1. HUMULIN N [Suspect]
     Dosage: 60 U/DAY
     Dates: start: 19910101
  2. HUMULIN R [Suspect]
     Dosage: 40 U/DAY
     Dates: start: 19910101

REACTIONS (3)
  - ARTHRITIS [None]
  - DECUBITUS ULCER [None]
  - LEG AMPUTATION [None]
